FAERS Safety Report 19101341 (Version 2)
Quarter: 2023Q2

REPORT INFORMATION
  Report Type: Report from Study
  Country: IN (occurrence: IN)
  Receive Date: 20210407
  Receipt Date: 20230628
  Transmission Date: 20230722
  Serious: Yes (Other)
  Sender: FDA-Public Use
  Company Number: IN-EMA-DD-20181003-TANEJAEVHP-141530

PATIENT
  Age: 42 Year
  Sex: Male

DRUGS (9)
  1. MELPHALAN [Suspect]
     Active Substance: MELPHALAN
     Indication: Bone marrow conditioning regimen
     Dosage: 140 MILLIGRAM/SQ. METER
     Route: 065
  2. MELPHALAN [Suspect]
     Active Substance: MELPHALAN
     Indication: Stem cell transplant
  3. CYTARABINE [Suspect]
     Active Substance: CYTARABINE
     Indication: Stem cell transplant
     Dosage: 2 GRAM PER SQUARE METRE
     Route: 065
  4. CYTARABINE [Suspect]
     Active Substance: CYTARABINE
     Indication: Bone marrow conditioning regimen
  5. FLUDARABINE [Suspect]
     Active Substance: FLUDARABINE PHOSPHATE
     Indication: Bone marrow conditioning regimen
     Dosage: 2 GRAM PER SQUARE METRE
     Route: 065
  6. FLUDARABINE [Suspect]
     Active Substance: FLUDARABINE PHOSPHATE
     Indication: Stem cell transplant
  7. IDARUBICIN [Suspect]
     Active Substance: IDARUBICIN
     Indication: Stem cell transplant
     Dosage: 10 MILLIGRAM/SQ. METER
     Route: 065
  8. IDARUBICIN [Suspect]
     Active Substance: IDARUBICIN
     Indication: Bone marrow conditioning regimen
  9. URSODIOL [Concomitant]
     Active Substance: URSODIOL
     Indication: Prophylaxis
     Dosage: 10 MILLIGRAM/KILOGRAM, ONCE A DAY
     Route: 065

REACTIONS (1)
  - Venoocclusive liver disease [Recovered/Resolved]
